FAERS Safety Report 16312110 (Version 1)
Quarter: 2019Q2

REPORT INFORMATION
  Report Type: Spontaneous
  Country: ES (occurrence: ES)
  Receive Date: 20190515
  Receipt Date: 20190515
  Transmission Date: 20190711
  Serious: Yes (Hospitalization, Other)
  Sender: FDA-Public Use
  Company Number: ES-ABBVIE-19K-144-2684621-00

PATIENT
  Age: 67 Year
  Sex: Female
  Weight: 49 kg

DRUGS (3)
  1. CELEBREX [Concomitant]
     Active Substance: CELECOXIB
     Indication: PSORIASIS
     Route: 048
  2. HUMIRA [Suspect]
     Active Substance: ADALIMUMAB
     Indication: PSORIATIC ARTHROPATHY
     Route: 058
     Dates: start: 201404, end: 201812
  3. HUMIRA [Suspect]
     Active Substance: ADALIMUMAB
     Indication: PUSTULAR PSORIASIS

REACTIONS (4)
  - Papilloedema [Unknown]
  - Bone scan abnormal [Unknown]
  - Optic nerve disorder [Unknown]
  - Optic neuritis [Recovering/Resolving]

NARRATIVE: CASE EVENT DATE: 20181224
